FAERS Safety Report 11186792 (Version 1)
Quarter: 2015Q2

REPORT INFORMATION
  Report Type: Spontaneous
  Country: US (occurrence: US)
  Receive Date: 20150614
  Receipt Date: 20150614
  Transmission Date: 20150821
  Serious: Yes (Other)
  Sender: FDA-Public Use
  Company Number: US-JNJFOC-20150602224

PATIENT
  Age: 8 Decade
  Sex: Male
  Weight: 84.37 kg

DRUGS (2)
  1. IMODIUM MULTI-SYMPTOM RELIEF [Suspect]
     Active Substance: DIMETHICONE\LOPERAMIDE HYDROCHLORIDE
     Indication: PYREXIA
     Route: 048
     Dates: start: 20150514, end: 20150531
  2. IMODIUM MULTI-SYMPTOM RELIEF [Suspect]
     Active Substance: DIMETHICONE\LOPERAMIDE HYDROCHLORIDE
     Indication: MUSCLE SPASMS
     Route: 048
     Dates: start: 20150514, end: 20150531

REACTIONS (6)
  - Product use issue [Unknown]
  - Choking [Recovered/Resolved]
  - Product physical issue [Unknown]
  - Product closure removal difficult [Unknown]
  - Retching [Unknown]
  - Feeling cold [Unknown]

NARRATIVE: CASE EVENT DATE: 20150514
